FAERS Safety Report 8331091-3 (Version None)
Quarter: 2012Q2

REPORT INFORMATION
  Report Type: 
  Country: None (occurrence: None)
  Receive Date: 20120502
  Receipt Date: 20120411
  Transmission Date: 20120825
  Serious: No
  Sender: FDA-Public Use
  Company Number: US-AMGEN-USASP2012023038

PATIENT
  Age: 28 Year
  Sex: Male

DRUGS (1)
  1. ENBREL [Suspect]
     Indication: ANKYLOSING SPONDYLITIS
     Dosage: 50 MG, QWK
     Dates: start: 20040819, end: 20111201

REACTIONS (4)
  - MUSCULOSKELETAL STIFFNESS [None]
  - CHEST PAIN [None]
  - CHEST DISCOMFORT [None]
  - BONE PAIN [None]
